FAERS Safety Report 11252035 (Version 1)
Quarter: 2015Q3

REPORT INFORMATION
  Report Type: Spontaneous
  Country: US (occurrence: US)
  Receive Date: 20150708
  Receipt Date: 20150708
  Transmission Date: 20151125
  Serious: No
  Sender: FDA-Public Use
  Company Number: US-ELI_LILLY_AND_COMPANY-US201211006484

PATIENT
  Sex: Male
  Weight: 90.25 kg

DRUGS (2)
  1. AXITINIB [Concomitant]
     Active Substance: AXITINIB
  2. PROZAC [Suspect]
     Active Substance: FLUOXETINE HYDROCHLORIDE

REACTIONS (2)
  - Dementia [Recovered/Resolved]
  - Personality change [Recovered/Resolved]
